FAERS Safety Report 5061777-8 (Version None)
Quarter: 2006Q3

REPORT INFORMATION
  Report Type: 
  Country: None (occurrence: None)
  Receive Date: 20060703
  Receipt Date: 20060109
  Transmission Date: 20061208
  Serious: No
  Sender: FDA-Public Use
  Company Number: 2006S1000326

PATIENT
  Age: 40 Year
  Sex: Female
  Weight: 99.7913 kg

DRUGS (8)
  1. CLOZAPINE [Suspect]
     Dosage: SEE IMAGE
     Route: 048
     Dates: start: 20030829
  2. CLOZAPINE [Suspect]
     Dosage: SEE IMAGE
     Route: 048
     Dates: start: 20030829
  3. RISPERIDONE [Concomitant]
  4. VALPROIC ACID [Concomitant]
  5. BENZTROPEINE [Concomitant]
  6. FIBRE, DIETARY [Concomitant]
  7. TEMAZEPAM [Concomitant]
  8. HYDROXYZINE [Concomitant]

REACTIONS (1)
  - GRANULOCYTOPENIA [None]
